FAERS Safety Report 8957193 (Version 1)
Quarter: 2012Q4

REPORT INFORMATION
  Report Type: 
  Country: JP (occurrence: JP)
  Receive Date: 20121211
  Receipt Date: 20121211
  Transmission Date: 20130627
  Serious: Yes (Hospitalization)
  Sender: FDA-Public Use
  Company Number: JP-JNJFOC-20121111067

PATIENT
  Age: 35 Year
  Sex: Male
  Weight: 55 kg

DRUGS (13)
  1. REMICADE [Suspect]
     Indication: CROHN^S DISEASE
     Route: 042
     Dates: start: 20111212
  2. REMICADE [Suspect]
     Indication: CROHN^S DISEASE
     Route: 042
     Dates: start: 20120202
  3. REMICADE [Suspect]
     Indication: CROHN^S DISEASE
     Route: 042
     Dates: start: 20111018
  4. REMICADE [Suspect]
     Indication: CROHN^S DISEASE
     Route: 042
     Dates: start: 20120524
  5. REMICADE [Suspect]
     Indication: CROHN^S DISEASE
     Route: 042
     Dates: start: 20120719
  6. REMICADE [Suspect]
     Indication: CROHN^S DISEASE
     Route: 042
     Dates: start: 20111101
  7. REMICADE [Suspect]
     Indication: CROHN^S DISEASE
     Dosage: 9th dose of infliximab
     Route: 042
     Dates: start: 20120913
  8. REMICADE [Suspect]
     Indication: CROHN^S DISEASE
     Route: 042
     Dates: start: 20120816
  9. REMICADE [Suspect]
     Indication: CROHN^S DISEASE
     Route: 042
     Dates: start: 20120329
  10. MIYA-BM [Concomitant]
     Indication: CROHN^S DISEASE
     Route: 048
     Dates: start: 20110207, end: 20121024
  11. PENTASA [Concomitant]
     Indication: CROHN^S DISEASE
     Route: 048
     Dates: start: 20110224, end: 20121024
  12. LANSOPRAZOLE [Concomitant]
     Indication: CROHN^S DISEASE
     Route: 048
     Dates: start: 20110315, end: 20121024
  13. FLAGYL [Concomitant]
     Indication: CROHN^S DISEASE
     Route: 048
     Dates: start: 20111124, end: 20121019

REACTIONS (1)
  - Pulmonary tuberculosis [Recovering/Resolving]
